FAERS Safety Report 7690567-2 (Version None)
Quarter: 2011Q3

REPORT INFORMATION
  Report Type: 
  Country: None (occurrence: None)
  Receive Date: 20110818
  Receipt Date: 20110810
  Transmission Date: 20111222
  Serious: Yes (Hospitalization, Other)
  Sender: FDA-Public Use
  Company Number: US-BAYER-201027315NA

PATIENT
  Age: 45 Year
  Sex: Female
  Weight: 160 kg

DRUGS (7)
  1. YAZ [Suspect]
  2. YASMIN [Suspect]
     Dosage: UNK
     Dates: start: 20070124, end: 20080624
  3. KEPPRA [Concomitant]
  4. ASCORBIC ACID [Concomitant]
  5. DROSPIRENONE AND ETHINYL ESTRADIOL [Suspect]
     Dosage: MANY YEARS PRIOR TO 10-DEC-2008
     Route: 048
     Dates: start: 20080723, end: 20081201
  6. YASMIN [Suspect]
     Indication: PRODUCT USED FOR UNKNOWN INDICATION
     Dosage: MANY YEARS PRIOR TO 10-DEC-2008
     Route: 048
     Dates: start: 20031120, end: 20031213
  7. M.V.I. [Concomitant]

REACTIONS (11)
  - DEEP VEIN THROMBOSIS [None]
  - PULMONARY EMBOLISM [None]
  - SYNCOPE [None]
  - PAIN [None]
  - ANXIETY [None]
  - HEAD INJURY [None]
  - FEAR [None]
  - HEADACHE [None]
  - CONVULSION [None]
  - STRESS [None]
  - PAIN IN EXTREMITY [None]
